FAERS Safety Report 8299906 (Version 4)
Quarter: 2014Q1

REPORT INFORMATION
  Report Type: Spontaneous
  Country: US (occurrence: US)
  Receive Date: 20111219
  Receipt Date: 20140324
  Transmission Date: 20141002
  Serious: Yes (Other)
  Sender: FDA-Public Use
  Company Number: US-ROCHE-786597

PATIENT
  Sex: Female
  Weight: 49.94 kg

DRUGS (1)
  1. ACCUTANE [Suspect]
     Indication: ACNE
     Route: 065
     Dates: start: 2002, end: 2003

REACTIONS (2)
  - Colitis ulcerative [Unknown]
  - Stress [Unknown]
